FAERS Safety Report 9843398 (Version 1)
Quarter: 2013Q4

REPORT INFORMATION
  Report Type: Spontaneous
  Country: US (occurrence: None)
  Receive Date: 20131223
  Receipt Date: 20131223
  Transmission Date: 20140711
  Serious: No
  Sender: FDA-Public Use
  Company Number: 218864LEO

PATIENT
  Sex: Female

DRUGS (2)
  1. PICATO [Suspect]
     Indication: ACTINIC KERATOSIS
     Route: 061
  2. AQUAPHORE (XIPAMIDE) [Concomitant]

REACTIONS (6)
  - Application site dryness [None]
  - Application site vesicles [None]
  - Application site burn [None]
  - Application site discharge [None]
  - Application site haemorrhage [None]
  - Application site discolouration [None]
